FAERS Safety Report 9468630 (Version 1)
Quarter: 2013Q3

REPORT INFORMATION
  Report Type: Spontaneous
  Country: US (occurrence: US)
  Receive Date: 20130821
  Receipt Date: 20130821
  Transmission Date: 20140515
  Serious: No
  Sender: FDA-Public Use
  Company Number: US-009507513-1308USA008175

PATIENT
  Age: 79 Year
  Sex: Female

DRUGS (3)
  1. MIRALAX [Suspect]
     Indication: CONSTIPATION
     Dosage: UNK, Q3D
     Route: 048
     Dates: start: 2011, end: 2013
  2. MIRALAX [Suspect]
     Indication: MEDICAL OBSERVATION
  3. MS CONTIN [Concomitant]
     Indication: BACK PAIN
     Dosage: 30 MG, BID

REACTIONS (1)
  - Drug effect decreased [Unknown]
